FAERS Safety Report 22221506 (Version 1)
Quarter: 2023Q2

REPORT INFORMATION
  Report Type: Report from Study
  Country: CA (occurrence: CA)
  Receive Date: 20230418
  Receipt Date: 20230418
  Transmission Date: 20230722
  Serious: Yes (Other)
  Sender: FDA-Public Use
  Company Number: CA-JNJFOC-20230310455

PATIENT
  Sex: Female

DRUGS (1)
  1. REMICADE [Suspect]
     Active Substance: INFLIXIMAB
     Indication: Crohn^s disease
     Dosage: EXPIRY DATE-31-AUG-2025. THE PATIENT HAD RECEIVED INFUSION ON 03-MAR-2023.
     Route: 041

REACTIONS (3)
  - Clostridium difficile infection [Recovered/Resolved]
  - Nephrolithiasis [Recovered/Resolved]
  - Stent placement [Unknown]
